FAERS Safety Report 7125793-4 (Version None)
Quarter: 2010Q4

REPORT INFORMATION
  Report Type: 
  Country: None (occurrence: None)
  Receive Date: 20101129
  Receipt Date: 20101118
  Transmission Date: 20110411
  Serious: Yes (Hospitalization)
  Sender: FDA-Public Use
  Company Number: B0686092A

PATIENT
  Age: 77 Year
  Sex: Female

DRUGS (6)
  1. COROPRES [Suspect]
     Dosage: 6.25MG TWICE PER DAY
     Route: 048
     Dates: start: 20030101, end: 20100420
  2. DIGOXIN [Suspect]
     Indication: ATRIAL FIBRILLATION
     Route: 048
     Dates: start: 20030101, end: 20100420
  3. ENALAPRIL [Suspect]
     Dosage: 10MG TWICE PER DAY
     Route: 048
     Dates: start: 20030101, end: 20100420
  4. ALDACTONE [Suspect]
     Dosage: 100MG PER DAY
     Route: 048
     Dates: start: 20090929, end: 20100420
  5. SEGURIL [Concomitant]
     Dates: start: 20030101
  6. SINTROM [Concomitant]

REACTIONS (6)
  - ANURIA [None]
  - ATRIOVENTRICULAR BLOCK [None]
  - DIARRHOEA [None]
  - DYSPNOEA [None]
  - HYPERKALAEMIA [None]
  - RENAL FAILURE ACUTE [None]
